FAERS Safety Report 8546310-8 (Version None)
Quarter: 2012Q3

REPORT INFORMATION
  Report Type: 
  Country: None (occurrence: None)
  Receive Date: 20120727
  Receipt Date: 20111213
  Transmission Date: 20120928
  Serious: No
  Sender: FDA-Public Use
  Company Number: US-ASTRAZENECA-2011SE75640

PATIENT
  Age: 16 Year
  Sex: Male
  Weight: 117.9 kg

DRUGS (3)
  1. METFORMIN HYDROCHLORIDE [Concomitant]
     Indication: DIABETES MELLITUS
  2. SEROQUEL [Suspect]
     Indication: MOOD SWINGS
     Route: 048
  3. SEROQUEL [Suspect]
     Indication: BIPOLAR DISORDER
     Route: 048

REACTIONS (2)
  - FATIGUE [None]
  - OFF LABEL USE [None]
